FAERS Safety Report 8835490 (Version 1)
Quarter: 2012Q4

REPORT INFORMATION
  Report Type: Report from Study
  Country: IT (occurrence: IT)
  Receive Date: 20121011
  Receipt Date: 20121011
  Transmission Date: 20130627
  Serious: Yes (Hospitalization)
  Sender: FDA-Public Use
  Company Number: IT-ROCHE-1142231

PATIENT
  Age: 65 Year
  Sex: Male
  Weight: 107 kg

DRUGS (4)
  1. HERCEPTIN [Suspect]
     Indication: COLORECTAL CANCER METASTATIC
     Dosage: cycle 2, last dose prior to AE on 21/Sep/2012
     Route: 042
     Dates: start: 20120824
  2. LAPATINIB [Suspect]
     Indication: COLORECTAL CANCER METASTATIC
     Dosage: last dose prior to AE 28/Sep/2012
     Route: 048
     Dates: start: 20120824
  3. CARDIOASPIRINA [Concomitant]
     Route: 065
     Dates: start: 2010
  4. LENDORMIN [Concomitant]
     Indication: INSOMNIA
     Route: 065
     Dates: start: 2010

REACTIONS (1)
  - Myocardial ischaemia [Not Recovered/Not Resolved]
